FAERS Safety Report 21785261 (Version 2)
Quarter: 2023Q1

REPORT INFORMATION
  Report Type: Spontaneous
  Country: DE (occurrence: DE)
  Receive Date: 20221227
  Receipt Date: 20230123
  Transmission Date: 20230417
  Serious: Yes (Other)
  Sender: FDA-Public Use
  Company Number: DE-UCBSA-2022061955

PATIENT
  Age: 63 Year
  Sex: Female

DRUGS (3)
  1. TOPIRAMATE [Suspect]
     Active Substance: TOPIRAMATE
     Indication: Epilepsy
     Dosage: 100 MILLIGRAM, QD, 50 MILLIGRAM, 2X/DAY (BID)
     Route: 065
  2. LEVETIRACETAM [Suspect]
     Active Substance: LEVETIRACETAM
     Indication: Epilepsy
     Dosage: 2000 MILLIGRAM, QD, 1000 MILLIGRAM, 2X/DAY (BID)
     Route: 065
     Dates: start: 20021015
  3. VIMPAT [Suspect]
     Active Substance: LACOSAMIDE
     Indication: Epilepsy
     Dosage: 300 MILLIGRAM, QD 150 MILLIGRAM, 2X/DAY (BID)
     Route: 065
     Dates: start: 20091015

REACTIONS (5)
  - Tongue neoplasm malignant stage unspecified [Unknown]
  - Radiation necrosis [Unknown]
  - Seizure [Unknown]
  - Fall [Unknown]
  - Rash [Unknown]

NARRATIVE: CASE EVENT DATE: 20200101
